FAERS Safety Report 7852046-9 (Version None)
Quarter: 2011Q4

REPORT INFORMATION
  Report Type: 
  Country: None (occurrence: None)
  Receive Date: 20111026
  Receipt Date: 20111024
  Transmission Date: 20120403
  Serious: Yes (Death)
  Sender: FDA-Public Use
  Company Number: US-SHIRE-ALL1-2011-04022

PATIENT
  Sex: Male

DRUGS (2)
  1. FOSRENOL [Suspect]
     Dosage: 500 MG, 3X/DAY:TID
     Route: 048
     Dates: start: 20101216
  2. FOSRENOL [Suspect]
     Indication: HYPERPHOSPHATAEMIA
     Dosage: 1000 MG, 3X/DAY:TID
     Route: 048
     Dates: start: 20101216

REACTIONS (1)
  - HAEMORRHAGE [None]
